FAERS Safety Report 24240936 (Version 1)
Quarter: 2024Q3

REPORT INFORMATION
  Report Type: Spontaneous
  Country: US (occurrence: US)
  Receive Date: 20240823
  Receipt Date: 20240823
  Transmission Date: 20241017
  Serious: Yes (Other)
  Sender: CHEPLAPHARM
  Company Number: US-ROCHE-10000057053

PATIENT
  Age: 57 Year
  Sex: Male

DRUGS (22)
  1. CAPECITABINE [Suspect]
     Active Substance: CAPECITABINE
     Indication: Rectal cancer
     Dosage: TAKE 3 TABLETS IN THE MORNING (1500 MG) AND 4 TABLETS IN THE EVENING (2000 MG) MONDAY THROUGH FRI...
     Route: 048
  2. CAPECITABINE [Suspect]
     Active Substance: CAPECITABINE
     Indication: Rectal cancer
     Dosage: TAKE 3 TABLETS IN THE MORNING (1500 MG) AND 4 TABLETS IN THE EVENING (2000 MG) MONDAY THROUGH FRI...
     Route: 048
  3. AMLODIPINE [Concomitant]
     Active Substance: AMLODIPINE BESYLATE
     Dosage: DAILY DOSE: 10 MILLIGRAM
  4. AZELAIC ACID [Concomitant]
     Active Substance: AZELAIC ACID
     Route: 061
  5. BENZOCAINE [Concomitant]
     Active Substance: BENZOCAINE
  6. CARVEDILOL [Concomitant]
     Active Substance: CARVEDILOL
     Dosage: DAILY DOSE: 12.5 MILLIGRAM
     Route: 048
  7. CETIRIZINE HYDROCHLORIDE [Concomitant]
     Active Substance: CETIRIZINE HYDROCHLORIDE
     Route: 048
  8. CLINDAMYCIN [Concomitant]
     Active Substance: CLINDAMYCIN
  9. CLOBETASOL [Concomitant]
     Active Substance: CLOBETASOL
  10. CLOTRIMAZOLE [Concomitant]
     Active Substance: CLOTRIMAZOLE
     Route: 061
  11. DOXYCYCLINE [Concomitant]
     Active Substance: DOXYCYCLINE\DOXYCYCLINE HYCLATE
  12. FLUTICASONE PROPIONATE [Concomitant]
     Active Substance: FLUTICASONE PROPIONATE
  13. HYDROCHLOROTHIAZIDE [Concomitant]
     Active Substance: HYDROCHLOROTHIAZIDE
  14. HYDROQUINONE [Concomitant]
     Active Substance: HYDROQUINONE
  15. IBUPROFEN [Concomitant]
     Active Substance: IBUPROFEN
  16. KETOCONAZOLE [Concomitant]
     Active Substance: KETOCONAZOLE
  17. LIDOCAINE [Concomitant]
     Active Substance: LIDOCAINE
  18. LOPERAMIDE [Concomitant]
     Active Substance: LOPERAMIDE
  19. METRONIDAZOLE [Concomitant]
     Active Substance: METRONIDAZOLE
  20. ONDANSETRON [Concomitant]
     Active Substance: ONDANSETRON
  21. OXYCODONE [Concomitant]
     Active Substance: OXYCODONE
  22. NEOMYCIN [Concomitant]
     Active Substance: NEOMYCIN

REACTIONS (6)
  - Metastases to liver [Unknown]
  - Hypokalaemia [Unknown]
  - Neuropathy peripheral [Unknown]
  - Skin hyperpigmentation [Unknown]
  - Stomatitis [Unknown]
  - Hypertension [Unknown]
